FAERS Safety Report 6550530-1 (Version None)
Quarter: 2010Q1

REPORT INFORMATION
  Report Type: 
  Country: None (occurrence: None)
  Receive Date: 20100125
  Receipt Date: 20100119
  Transmission Date: 20100710
  Serious: Yes (Hospitalization)
  Sender: FDA-Public Use
  Company Number: B0626993A

PATIENT
  Sex: Female

DRUGS (5)
  1. AUGMENTIN '125' [Suspect]
     Indication: TOOTH INFECTION
     Dosage: 1G THREE TIMES PER DAY
     Route: 048
     Dates: start: 20090921, end: 20090928
  2. TOPLEXIL [Suspect]
     Indication: COUGH
     Dosage: 15ML THREE TIMES PER DAY
     Route: 048
     Dates: start: 20090921, end: 20090928
  3. RHINADVIL [Concomitant]
     Indication: NASAL CONGESTION
     Dosage: 1UNIT TWICE PER DAY
     Route: 048
     Dates: start: 20090921, end: 20090928
  4. DOLIPRANE [Concomitant]
     Indication: TOOTHACHE
     Dosage: 1G FOUR TIMES PER DAY
     Route: 048
     Dates: start: 20090921, end: 20090928
  5. DERINOX [Concomitant]
     Dosage: 2UNIT TWICE PER DAY
     Route: 045

REACTIONS (3)
  - AUTOIMMUNE THROMBOCYTOPENIA [None]
  - METRORRHAGIA [None]
  - RED BLOOD CELL COUNT DECREASED [None]
